FAERS Safety Report 9861135 (Version 1)
Quarter: 2014Q1

REPORT INFORMATION
  Report Type: Spontaneous
  Country: US (occurrence: US)
  Receive Date: 20140202
  Receipt Date: 20140202
  Transmission Date: 20141002
  Serious: No
  Sender: FDA-Public Use
  Company Number: US-ALLERGAN-1303654US

PATIENT
  Age: 33 Year
  Sex: Female

DRUGS (12)
  1. BOTOX [Suspect]
     Indication: MIGRAINE
     Dosage: 155 UNITS, SINGLE
     Route: 030
     Dates: start: 20130123, end: 20130123
  2. BOTOX [Suspect]
     Indication: MUSCLE DISORDER
     Dosage: 10 UNITS, SINGLE
     Route: 030
     Dates: start: 20130123, end: 20130123
  3. IUD NOS [Concomitant]
     Indication: PRODUCT USED FOR UNKNOWN INDICATION
     Route: 015
  4. TOPAMAX [Concomitant]
     Indication: MIGRAINE
     Dosage: UNK UNK, QD
     Route: 048
  5. CYCLOBENZAPRINE [Concomitant]
     Indication: MIGRAINE
     Dosage: UNK UNK, QD
     Route: 048
  6. DULCOLAX                           /00064401/ [Concomitant]
     Indication: PRODUCT USED FOR UNKNOWN INDICATION
     Dosage: UNK
  7. CLARITIN                           /00917501/ [Concomitant]
     Indication: DRUG HYPERSENSITIVITY
     Dosage: UNK
  8. ZYRTEC                             /00884302/ [Concomitant]
     Indication: DRUG HYPERSENSITIVITY
     Dosage: UNK
  9. PRILOSEC                           /00661201/ [Concomitant]
     Indication: PRODUCT USED FOR UNKNOWN INDICATION
     Dosage: 20 MG, QD
     Route: 048
  10. D.H.E. 45 [Concomitant]
     Indication: MIGRAINE
     Dosage: UNK
  11. KETOROLAC INJECTIONS [Concomitant]
     Indication: MIGRAINE
     Dosage: UNK
  12. COMPAZINE                          /00013304/ [Concomitant]
     Indication: PRODUCT USED FOR UNKNOWN INDICATION
     Dosage: UNK

REACTIONS (4)
  - Lip swelling [Unknown]
  - Off label use [Unknown]
  - Urticaria [Not Recovered/Not Resolved]
  - Urticaria [Not Recovered/Not Resolved]
